FAERS Safety Report 24572397 (Version 1)
Quarter: 2024Q4

REPORT INFORMATION
  Report Type: Spontaneous
  Country: US (occurrence: None)
  Receive Date: 20241101
  Receipt Date: 20241101
  Transmission Date: 20250114
  Serious: No
  Sender: Public
  Company Number: None

PATIENT
  Sex: 0

DRUGS (1)
  1. CITALOPRAM [Suspect]
     Active Substance: CITALOPRAM

REACTIONS (10)
  - Panic attack [None]
  - Dyspnoea [None]
  - Anxiety [None]
  - Therapy interrupted [None]
  - Drug interaction [None]
  - Hypotension [None]
  - Hypertension [None]
  - Insomnia [None]
  - Hyperhidrosis [None]
  - Irritability [None]
